FAERS Safety Report 23648419 (Version 1)
Quarter: 2024Q1

REPORT INFORMATION
  Report Type: Spontaneous
  Country: CN (occurrence: CN)
  Receive Date: 20240319
  Receipt Date: 20240319
  Transmission Date: 20240410
  Serious: Yes (Other)
  Sender: FDA-Public Use
  Company Number: CN-002147023-NVSC2024CN054528

PATIENT
  Age: 54 Year
  Sex: Female

DRUGS (5)
  1. DABRAFENIB [Suspect]
     Active Substance: DABRAFENIB
     Indication: Non-small cell lung cancer
     Dosage: 150 MG, BID
     Route: 048
     Dates: start: 20230125
  2. TRAMETINIB [Suspect]
     Active Substance: TRAMETINIB
     Indication: Non-small cell lung cancer
     Dosage: 2 MG, QD
     Route: 048
     Dates: start: 20230125
  3. OSIMERTINIB [Concomitant]
     Active Substance: OSIMERTINIB
     Indication: Non-small cell lung cancer
     Dosage: 80 MG, QD
     Route: 048
     Dates: start: 20200302
  4. OSIMERTINIB [Concomitant]
     Active Substance: OSIMERTINIB
     Dosage: 80 MG, QD
     Route: 048
     Dates: start: 20230125
  5. DENOSUMAB [Concomitant]
     Active Substance: DENOSUMAB
     Indication: Product used for unknown indication
     Dosage: 120 MG
     Route: 058
     Dates: start: 202204, end: 202307

REACTIONS (4)
  - Metastases to lung [Unknown]
  - Pleural effusion [Unknown]
  - Pericardial effusion [Unknown]
  - Pyrexia [Recovered/Resolved]
